FAERS Safety Report 10833744 (Version 1)
Quarter: 2015Q1

REPORT INFORMATION
  Report Type: Spontaneous
  Country: US (occurrence: US)
  Receive Date: 20150219
  Receipt Date: 20150219
  Transmission Date: 20150721
  Serious: Yes (Hospitalization, Other)
  Sender: FDA-Public Use
  Company Number: US-009507513-1502USA008122

PATIENT
  Age: 16 Year
  Sex: Male

DRUGS (2)
  1. CORICIDIN HBP COUGH AND COLD [Suspect]
     Active Substance: CHLORPHENIRAMINE MALEATE\DEXTROMETHORPHAN HYDROBROMIDE
     Indication: SUICIDE ATTEMPT
     Dosage: UNK, UNKNOWN
     Route: 048
  2. METHADONE HYDROCHLORIDE. [Suspect]
     Active Substance: METHADONE HYDROCHLORIDE
     Indication: SUICIDE ATTEMPT
     Dosage: UNK, UNKNOWN

REACTIONS (9)
  - Hyperthermia [Recovered/Resolved]
  - Intentional overdose [Unknown]
  - Serotonin syndrome [Unknown]
  - Myoclonus [Recovering/Resolving]
  - Hyporesponsive to stimuli [Recovering/Resolving]
  - Hyperhidrosis [Unknown]
  - Rhabdomyolysis [Unknown]
  - Hyperreflexia [Unknown]
  - Tachycardia [Recovering/Resolving]
